FAERS Safety Report 7548520-5 (Version None)
Quarter: 2011Q2

REPORT INFORMATION
  Report Type: 
  Country: None (occurrence: None)
  Receive Date: 20110524
  Receipt Date: 20110222
  Transmission Date: 20111010
  Serious: No
  Sender: FDA-Public Use
  Company Number: 026252

PATIENT
  Sex: Female
  Weight: 44.5 kg

DRUGS (4)
  1. PLAVIX [Concomitant]
  2. VITAMINS NOS [Concomitant]
  3. MONOPRIL /00915301/ [Concomitant]
  4. CIMZIA [Suspect]
     Indication: CROHN'S DISEASE
     Dosage: (2 SHOTS SUBCUTANEOUS)
     Route: 058
     Dates: start: 20091204

REACTIONS (6)
  - HERNIA [None]
  - WEIGHT INCREASED [None]
  - CROHN'S DISEASE [None]
  - FLATULENCE [None]
  - MYALGIA [None]
  - GASTROENTERITIS VIRAL [None]
